FAERS Safety Report 21917426 (Version 2)
Quarter: 2023Q1

REPORT INFORMATION
  Report Type: Report from Study
  Country: US (occurrence: US)
  Receive Date: 20230126
  Receipt Date: 20230216
  Transmission Date: 20230417
  Serious: No
  Sender: FDA-Public Use
  Company Number: US-ACADIA PHARMACEUTICALS INC.-ACA-2023-PIM-000018

PATIENT
  Sex: Female

DRUGS (2)
  1. NUPLAZID [Suspect]
     Active Substance: PIMAVANSERIN TARTRATE
     Indication: Parkinson^s disease
     Dosage: 34 MILLIGRAM, QD
     Route: 048
     Dates: start: 20221207
  2. GOCOVRI [Concomitant]
     Active Substance: AMANTADINE
     Dosage: 137MILLIGRAM

REACTIONS (2)
  - Adverse drug reaction [Recovered/Resolved]
  - Hypersensitivity [Not Recovered/Not Resolved]
